FAERS Safety Report 7102675-5 (Version None)
Quarter: 2010Q4

REPORT INFORMATION
  Report Type: 
  Country: None (occurrence: None)
  Receive Date: 20101115
  Receipt Date: 20071105
  Transmission Date: 20110411
  Serious: Yes (Death, Hospitalization)
  Sender: FDA-Public Use
  Company Number: PHBS2007ES18445

PATIENT
  Age: 73 Year
  Sex: Female

DRUGS (10)
  1. CO-VALS [Suspect]
     Indication: HYPERTENSION
     Dosage: UNK, UNK
     Route: 048
     Dates: start: 20070101, end: 20070322
  2. AUGEMENTIN PLUS [Suspect]
     Indication: RESPIRATORY TRACT INFECTION
     Dosage: 4000 MG, BID
     Route: 048
     Dates: start: 20070320, end: 20070322
  3. SINTROM [Concomitant]
     Dosage: 4 MG, UNK
     Dates: start: 20040101
  4. DIGOXINE [Concomitant]
     Route: 065
     Dates: start: 20040101
  5. CARDURA [Concomitant]
     Dosage: 4 MG, UNK
     Route: 065
     Dates: start: 20040101
  6. VALSARTAN [Concomitant]
     Dosage: 80 MG, UNK
     Route: 065
     Dates: start: 20040101, end: 20070101
  7. EMEPROTON [Concomitant]
     Dosage: 20 MG, UNK
     Route: 065
     Dates: start: 20040101
  8. ZARATOR [Concomitant]
     Dosage: 20 MG, UNK
     Route: 065
     Dates: start: 20040101
  9. SEGURIL [Concomitant]
     Dosage: 40 MG, UNK
     Route: 065
     Dates: start: 20040101
  10. AREMIS [Concomitant]
     Dosage: 50 MG, UNK
     Route: 065
     Dates: start: 20040101

REACTIONS (7)
  - ACINETOBACTER INFECTION [None]
  - ASPIRATION TRACHEAL [None]
  - RENAL FAILURE [None]
  - RESPIRATORY FAILURE [None]
  - RESPIRATORY TRACT INFECTION [None]
  - SEPTIC SHOCK [None]
  - TOXIC EPIDERMAL NECROLYSIS [None]
